FAERS Safety Report 9954240 (Version 1)
Quarter: 2014Q1

REPORT INFORMATION
  Report Type: Spontaneous
  Country: US (occurrence: US)
  Receive Date: 20140304
  Receipt Date: 20140304
  Transmission Date: 20141002
  Serious: Yes (Other)
  Sender: FDA-Public Use
  Company Number: PHHY2014US023813

PATIENT
  Age: 44 Year
  Sex: Female

DRUGS (9)
  1. BORTEZOMIB [Suspect]
     Indication: AMYLOIDOSIS
     Dosage: 1.3 MG/M2
  2. BORTEZOMIB [Suspect]
     Dosage: 1 MG/M2, UNK
  3. DEXAMETHASONE [Suspect]
     Indication: AMYLOIDOSIS
     Dosage: 20 MG, UNK
  4. DEXAMETHASONE [Suspect]
     Dosage: 4 MG, UNK
  5. DEXAMETHASONE [Suspect]
     Dosage: 10 MG, UNK
  6. ONDANSETRON [Suspect]
     Indication: PREMEDICATION
     Dosage: 24 MG, UNK
     Route: 042
  7. LENALIDOMIDE [Suspect]
     Indication: AMYLOIDOSIS
     Dosage: 15 MG, UNK
  8. LENALIDOMIDE [Suspect]
     Dosage: 10 MG, UNK
  9. CYCLOPHOSPHAMIDE [Suspect]
     Indication: AMYLOIDOSIS
     Dosage: 300 MG, UNK

REACTIONS (4)
  - Neuropathy peripheral [Recovered/Resolved]
  - Fluid overload [Unknown]
  - Dizziness [Recovered/Resolved]
  - Drug effect incomplete [Unknown]
